FAERS Safety Report 8908207 (Version 15)
Quarter: 2014Q2

REPORT INFORMATION
  Report Type: Spontaneous
  Country: US (occurrence: US)
  Receive Date: 20121114
  Receipt Date: 20140618
  Transmission Date: 20141212
  Serious: Yes (Hospitalization, Other)
  Sender: FDA-Public Use
  Company Number: PHEH2012US022489

PATIENT
  Sex: Male

DRUGS (7)
  1. ZOMETA [Suspect]
     Dosage: UNK UKN, UNK
     Route: 042
     Dates: end: 200802
  2. AREDIA [Suspect]
     Dosage: UNK UKN, UNK
     Route: 042
  3. ARANESP [Concomitant]
  4. ALLOPURINOL [Concomitant]
  5. VELCADE [Concomitant]
  6. REVLIMID [Concomitant]
  7. ACYCLOVIR [Concomitant]

REACTIONS (159)
  - Musculoskeletal chest pain [Unknown]
  - Osteonecrosis of jaw [Unknown]
  - Pain [Unknown]
  - Infection [Unknown]
  - Deformity [Unknown]
  - Injury [Unknown]
  - Emotional distress [Unknown]
  - Anxiety [Unknown]
  - Physical disability [Unknown]
  - Plasma cell myeloma [Unknown]
  - Tooth deposit [Unknown]
  - Gingival swelling [Unknown]
  - Bone cancer [Unknown]
  - Pneumonia viral [Unknown]
  - Pelvic fracture [Unknown]
  - Rib fracture [Unknown]
  - Scrotal mass [Unknown]
  - Fall [Unknown]
  - Foot fracture [Unknown]
  - Road traffic accident [Unknown]
  - Ligament sprain [Unknown]
  - Contusion [Unknown]
  - Depression [Unknown]
  - Abdominal hernia [Unknown]
  - Urethritis [Unknown]
  - Large intestine polyp [Unknown]
  - Osteoarthritis [Unknown]
  - Spinal compression fracture [Unknown]
  - Soft tissue mass [Unknown]
  - Spinal cord compression [Unknown]
  - Intervertebral disc space narrowing [Unknown]
  - Deafness [Unknown]
  - Osteoporosis [Unknown]
  - Bronchitis [Unknown]
  - Productive cough [Unknown]
  - Tongue disorder [Unknown]
  - Osteosclerosis [Unknown]
  - Chest pain [Unknown]
  - Foot deformity [Unknown]
  - Renal failure acute [Unknown]
  - Dehydration [Unknown]
  - Hypoxia [Unknown]
  - Tachycardia [Unknown]
  - Mitral valve calcification [Unknown]
  - Bone deformity [Unknown]
  - Osteopenia [Unknown]
  - Dyspnoea [Unknown]
  - Lung infiltration [Unknown]
  - Tracheal deviation [Unknown]
  - Umbilical hernia [Unknown]
  - Incisional hernia [Unknown]
  - Rales [Unknown]
  - Herpes zoster [Unknown]
  - Neuropathy peripheral [Unknown]
  - Insomnia [Unknown]
  - Spinal osteoarthritis [Unknown]
  - Hypovitaminosis [Unknown]
  - Deep vein thrombosis [Unknown]
  - Pathological fracture [Unknown]
  - Upper respiratory tract infection [Unknown]
  - Exostosis [Unknown]
  - Toothache [Unknown]
  - Tooth abscess [Unknown]
  - Sinus disorder [Unknown]
  - Facial pain [Unknown]
  - Gingival bleeding [Unknown]
  - Gingival pain [Unknown]
  - Oral infection [Unknown]
  - Carpal tunnel syndrome [Unknown]
  - Sexually transmitted disease [Unknown]
  - Erectile dysfunction [Unknown]
  - Paraesthesia [Unknown]
  - Lip pain [Unknown]
  - Dysuria [Unknown]
  - Tooth loss [Unknown]
  - Pharyngeal erythema [Unknown]
  - Dental caries [Unknown]
  - Tooth fracture [Unknown]
  - Aortic calcification [Unknown]
  - Gynaecomastia [Unknown]
  - Atelectasis [Unknown]
  - Sepsis [Unknown]
  - Aortic arteriosclerosis [Unknown]
  - Change of bowel habit [Unknown]
  - Renal failure chronic [Unknown]
  - Drug dependence [Unknown]
  - Pancytopenia [Unknown]
  - Muscle atrophy [Unknown]
  - Muscular weakness [Unknown]
  - Hypertension [Unknown]
  - Oral herpes [Recovered/Resolved]
  - Spinal pain [Unknown]
  - Haemoptysis [Unknown]
  - Neutropenia [Unknown]
  - Leukopenia [Unknown]
  - Hyponatraemia [Unknown]
  - Dysphagia [Unknown]
  - Gastrooesophageal reflux disease [Unknown]
  - Swelling [Unknown]
  - Chronic sinusitis [Unknown]
  - Laceration [Unknown]
  - Osteolysis [Unknown]
  - Haematuria [Unknown]
  - Lumbar vertebral fracture [Unknown]
  - Epistaxis [Unknown]
  - Colon adenoma [Unknown]
  - Visual impairment [Unknown]
  - Osteomyelitis [Unknown]
  - Bone lesion [Unknown]
  - Metastases to bone [Unknown]
  - Hip fracture [Unknown]
  - Swelling face [Unknown]
  - Purulent discharge [Unknown]
  - Spinal deformity [Unknown]
  - Torticollis [Unknown]
  - Muscle spasms [Unknown]
  - Synovial cyst [Unknown]
  - Joint swelling [Unknown]
  - Pleural effusion [Unknown]
  - Diabetes mellitus [Unknown]
  - Tuberculosis [Unknown]
  - Gingivitis [Unknown]
  - Periodontitis [Unknown]
  - Mouth haemorrhage [Unknown]
  - Bone pain [Unknown]
  - Bone fragmentation [Unknown]
  - Thrombosis [Unknown]
  - Pneumonia [Unknown]
  - Oesophageal dilatation [Unknown]
  - Oesophageal motility disorder [Unknown]
  - Pain in jaw [Unknown]
  - Gingival erythema [Unknown]
  - Gingival oedema [Unknown]
  - Exposed bone in jaw [Unknown]
  - Loose tooth [Unknown]
  - Anaemia [Unknown]
  - Talipes [Unknown]
  - Loose body in joint [Unknown]
  - Limb injury [Unknown]
  - Hyperkeratosis [Unknown]
  - Bone cyst [Unknown]
  - Vomiting [Unknown]
  - Pyrexia [Unknown]
  - Migraine [Unknown]
  - Diarrhoea [Unknown]
  - Constipation [Unknown]
  - Back pain [Unknown]
  - Neck pain [Unknown]
  - Headache [Unknown]
  - Pain in extremity [Unknown]
  - Musculoskeletal pain [Unknown]
  - Abdominal pain [Unknown]
  - Hypoaesthesia [Unknown]
  - Oedema peripheral [Unknown]
  - Arthralgia [Unknown]
  - Breath sounds abnormal [Unknown]
  - Nausea [Unknown]
  - Chills [Unknown]
  - Gait disturbance [Unknown]
